FAERS Safety Report 6189353-4 (Version None)
Quarter: 2009Q2

REPORT INFORMATION
  Report Type: 
  Country: None (occurrence: None)
  Receive Date: 20090512
  Receipt Date: 20090424
  Transmission Date: 20091009
  Serious: Yes (Life-Threatening, Hospitalization, Other)
  Sender: FDA-Public Use
  Company Number: ADE# 09-155DPR

PATIENT
  Age: 89 Year
  Sex: Female

DRUGS (10)
  1. DIGOXIN [Suspect]
     Indication: CARDIAC DISORDER
     Dosage: YEARS AGO
     Dates: end: 20090422
  2. ADVAIR HFA [Concomitant]
  3. ALBUTEROL [Concomitant]
  4. FUROSEMIDE [Concomitant]
  5. ISOSORBIDE MONONITRATE [Concomitant]
  6. POTASSIUM CHLORIDE [Concomitant]
  7. PROTONIX [Concomitant]
  8. SERTRALINE [Concomitant]
  9. LISINOPRIL [Concomitant]
  10. METOPROLOL SUCCINATE [Concomitant]

REACTIONS (10)
  - ASTHENIA [None]
  - BLOOD GLUCOSE ABNORMAL [None]
  - CARDIOACTIVE DRUG LEVEL INCREASED [None]
  - CONVULSION [None]
  - GLUCOSE TOLERANCE IMPAIRED [None]
  - HEART RATE DECREASED [None]
  - HYPERTENSION [None]
  - PALLOR [None]
  - SKIN DISCOLOURATION [None]
  - SYNCOPE [None]
